FAERS Safety Report 24614728 (Version 1)
Quarter: 2024Q4

REPORT INFORMATION
  Report Type: Spontaneous
  Country: US (occurrence: US)
  Receive Date: 20241113
  Receipt Date: 20241113
  Transmission Date: 20250114
  Serious: Yes (Other)
  Sender: AUROBINDO
  Company Number: US-AUROBINDO-AUR-APL-2024-054507

PATIENT
  Age: 37 Year
  Sex: Female

DRUGS (3)
  1. PREDNISONE [Suspect]
     Active Substance: PREDNISONE
     Indication: Encapsulating peritoneal sclerosis
     Dosage: 40 MILLIGRAM, DAILY
     Route: 065
  2. TAMOXIFEN [Suspect]
     Active Substance: TAMOXIFEN
     Indication: Nausea
     Dosage: 10 MILLIGRAM, 3 TIMES A DAY
     Route: 065
  3. TAMOXIFEN [Suspect]
     Active Substance: TAMOXIFEN
     Indication: Vomiting

REACTIONS (1)
  - Disease recurrence [Unknown]
